FAERS Safety Report 7372903-X (Version None)
Quarter: 2011Q1

REPORT INFORMATION
  Report Type: 
  Country: None (occurrence: None)
  Receive Date: 20110324
  Receipt Date: 20110311
  Transmission Date: 20110831
  Serious: Yes (Other)
  Sender: FDA-Public Use
  Company Number: JP-PFIZER INC-2011053705

PATIENT
  Age: 69 Year
  Sex: Male

DRUGS (3)
  1. LANDIOLOL HYDROCHLORIDE [Suspect]
     Indication: THYROTOXIC CRISIS
  2. IODINE [Suspect]
     Indication: THYROTOXIC CRISIS
  3. HYDROCORTISONE [Suspect]
     Indication: THYROTOXIC CRISIS

REACTIONS (1)
  - VENTRICULAR FIBRILLATION [None]
